FAERS Safety Report 6432018-1 (Version None)
Quarter: 2009Q4

REPORT INFORMATION
  Report Type: 
  Country: None (occurrence: None)
  Receive Date: 20091109
  Receipt Date: 20091029
  Transmission Date: 20100525
  Serious: Yes (Hospitalization)
  Sender: FDA-Public Use
  Company Number: FR-JNJFOC-20080702377

PATIENT
  Age: 53 Year
  Sex: Male

DRUGS (7)
  1. REMICADE [Suspect]
     Route: 042
     Dates: start: 20070321, end: 20071001
  2. REMICADE [Suspect]
     Route: 042
     Dates: start: 20070321, end: 20071001
  3. REMICADE [Suspect]
     Route: 042
     Dates: start: 20070321, end: 20071001
  4. REMICADE [Suspect]
     Route: 042
     Dates: start: 20070321, end: 20071001
  5. REMICADE [Suspect]
     Route: 042
     Dates: start: 20070321, end: 20071001
  6. REMICADE [Suspect]
     Indication: ANKYLOSING SPONDYLITIS
     Route: 042
     Dates: start: 20070321, end: 20071001
  7. ENBREL [Suspect]
     Indication: DRUG USE FOR UNKNOWN INDICATION
     Route: 058

REACTIONS (1)
  - LUNG NEOPLASM MALIGNANT [None]
